FAERS Safety Report 20616650 (Version 2)
Quarter: 2024Q1

REPORT INFORMATION
  Report Type: Spontaneous
  Country: US (occurrence: US)
  Receive Date: 20220321
  Receipt Date: 20240329
  Transmission Date: 20240410
  Serious: Yes (Hospitalization, Other)
  Sender: FDA-Public Use
  Company Number: US-PFIZER INC-202200397265

PATIENT
  Age: 79 Year
  Sex: Male
  Weight: 83.91 kg

DRUGS (1)
  1. VYNDAMAX [Suspect]
     Active Substance: TAFAMIDIS
     Indication: Cardiac failure
     Dosage: 61 MG, 1X/DAY (IN THE MORNING)

REACTIONS (2)
  - Back disorder [Unknown]
  - Weight decreased [Unknown]
